FAERS Safety Report 4617859-5 (Version None)
Quarter: 2005Q1

REPORT INFORMATION
  Report Type: 
  Country: None (occurrence: None)
  Receive Date: 20050324
  Receipt Date: 20050311
  Transmission Date: 20050727
  Serious: Yes (Hospitalization)
  Sender: FDA-Public Use
  Company Number: 2005/-02-1475

PATIENT
  Age: 38 Year
  Sex: Female

DRUGS (3)
  1. PAROXETINE HYDROCHLORIDE [Suspect]
  2. PEG-INTRON [Suspect]
     Route: 058
     Dates: start: 20030930, end: 20040901
  3. REBETOL [Suspect]
     Dosage: 800MG FOUR TIMES PER DAY
     Dates: start: 20030930, end: 20040901

REACTIONS (1)
  - MANIA [None]
